FAERS Safety Report 10245263 (Version 1)
Quarter: 2014Q2

REPORT INFORMATION
  Report Type: Report from Study
  Country: US (occurrence: US)
  Receive Date: 20140618
  Receipt Date: 20140618
  Transmission Date: 20141212
  Serious: Yes (Death, Other)
  Sender: FDA-Public Use
  Company Number: US-ROCHE-1415768

PATIENT
  Sex: 0

DRUGS (3)
  1. INTERFERON ALFA-2A [Suspect]
     Indication: SMALL CELL LUNG CANCER RECURRENT
     Dosage: 6 MILLION UNITS/M2 ON DAYS 1 AND 2 OF EACH WEEK FOR 6 WEEKS
     Route: 058
  2. ISOTRETINOIN [Suspect]
     Indication: SMALL CELL LUNG CANCER RECURRENT
     Dosage: ON DAYS 1 AND 2 OF EACH WEEK FOR 6 WEEKS
     Route: 048
  3. PACLITAXEL [Suspect]
     Indication: SMALL CELL LUNG CANCER RECURRENT
     Dosage: ON DAY 2 OF EACH WEEK FOR 6 WEEKS
     Route: 042

REACTIONS (24)
  - Pancreatitis [Fatal]
  - Leukopenia [Unknown]
  - Neutropenia [Unknown]
  - Amylase increased [Unknown]
  - Lipase increased [Unknown]
  - Anaemia [Unknown]
  - Hypotension [Unknown]
  - Fatigue [Unknown]
  - Dehydration [Unknown]
  - Dysphagia [Unknown]
  - Vomiting [Unknown]
  - Blood alkaline phosphatase increased [Unknown]
  - Aspartate aminotransferase increased [Unknown]
  - Alanine aminotransferase increased [Unknown]
  - Febrile neutropenia [Unknown]
  - Neutropenic infection [Unknown]
  - Infection [Unknown]
  - Hypertriglyceridaemia [Unknown]
  - Hypokalaemia [Unknown]
  - Hyponatraemia [Unknown]
  - Muscular weakness [Unknown]
  - Peripheral motor neuropathy [Unknown]
  - Cough [Unknown]
  - Dyspnoea [Unknown]
